FAERS Safety Report 7841793-0 (Version None)
Quarter: 2011Q4

REPORT INFORMATION
  Report Type: 
  Country: None (occurrence: None)
  Receive Date: 20111025
  Receipt Date: 20111012
  Transmission Date: 20120403
  Serious: Yes (Other)
  Sender: FDA-Public Use
  Company Number: CA-UCBSA-031065

PATIENT
  Age: 44 Year
  Sex: Female
  Weight: 84.1 kg

DRUGS (12)
  1. CIMZIA [Suspect]
     Indication: RHEUMATOID ARTHRITIS
     Route: 058
     Dates: start: 20110309
  2. CIMZIA [Suspect]
     Dosage: LOADING DOSE WEEKS 0-2-4
     Route: 058
     Dates: start: 20110126, end: 20110223
  3. METHOTREXATE [Concomitant]
     Indication: RHEUMATOID ARTHRITIS
     Route: 058
     Dates: start: 20060901
  4. PLAQUENIL [Concomitant]
     Indication: RHEUMATOID ARTHRITIS
     Route: 048
     Dates: start: 20060901
  5. ELMIRON [Concomitant]
  6. OXAZEPAM [Concomitant]
     Dosage: ONCE DAILY IN PM
     Route: 048
  7. OXAZEPAM [Concomitant]
     Dosage: ONCE NIGHTLY
     Route: 048
  8. ABILIFY [Concomitant]
  9. PANTOPRAZOLE SODIUM [Concomitant]
     Indication: GASTRIC DISORDER
     Route: 048
  10. FOLIC ACID [Concomitant]
     Indication: RHEUMATOID ARTHRITIS
     Route: 048
  11. CYESTIA [Concomitant]
     Indication: POLYCYSTIC OVARIES
     Dosage: 35 (UNITS UNSPECIFIED) DAILY
  12. MELOXICAM [Concomitant]
     Indication: RHEUMATOID ARTHRITIS
     Route: 048

REACTIONS (3)
  - DIABETES MELLITUS [None]
  - NEUROPATHY PERIPHERAL [None]
  - INJECTION SITE REACTION [None]
